FAERS Safety Report 7935984-8 (Version None)
Quarter: 2011Q4

REPORT INFORMATION
  Report Type: 
  Country: None (occurrence: None)
  Receive Date: 20111123
  Receipt Date: 20111114
  Transmission Date: 20120403
  Serious: Yes (Other)
  Sender: FDA-Public Use
  Company Number: CA-JNJFOC-20111106283

PATIENT
  Sex: Male
  Weight: 144.9 kg

DRUGS (1)
  1. REMICADE [Suspect]
     Indication: CROHN'S DISEASE
     Dosage: 35 INFUSIONS TO DATE

REACTIONS (2)
  - FOREIGN BODY IN EYE [None]
  - VISION BLURRED [None]
